FAERS Safety Report 7465133-4 (Version None)
Quarter: 2011Q2

REPORT INFORMATION
  Report Type: 
  Country: None (occurrence: None)
  Receive Date: 20110509
  Receipt Date: 20110427
  Transmission Date: 20111010
  Serious: Yes (Other)
  Sender: FDA-Public Use
  Company Number: JP-JNJFOC-20100903183

PATIENT
  Sex: Female

DRUGS (12)
  1. MAGMITT [Concomitant]
     Route: 048
  2. TOPIRAMATE [Suspect]
     Indication: EPILEPSY
     Route: 048
  3. TOPIRAMATE [Suspect]
     Route: 048
  4. LOXONIN [Concomitant]
     Route: 048
  5. MYSLEE [Concomitant]
     Indication: ILL-DEFINED DISORDER
     Route: 048
  6. CRESTOR [Suspect]
     Indication: HYPERLIPIDAEMIA
     Route: 048
  7. PHENOBAL [Concomitant]
     Route: 048
  8. DIOVAN [Concomitant]
     Route: 048
  9. THYRADIN S [Concomitant]
     Route: 048
  10. CALCIUM LACTATE [Concomitant]
     Route: 048
  11. TOPIRAMATE [Suspect]
     Route: 048
  12. ALFAROL [Concomitant]
     Route: 048

REACTIONS (4)
  - ASPARTATE AMINOTRANSFERASE INCREASED [None]
  - ALANINE AMINOTRANSFERASE INCREASED [None]
  - EOSINOPHIL PERCENTAGE INCREASED [None]
  - BLOOD LACTATE DEHYDROGENASE INCREASED [None]
